FAERS Safety Report 5887869-9 (Version None)
Quarter: 2008Q3

REPORT INFORMATION
  Report Type: 
  Country: None (occurrence: None)
  Receive Date: 20080916
  Receipt Date: 20080827
  Transmission Date: 20090109
  Serious: Yes (Other)
  Sender: FDA-Public Use
  Company Number: D-08-0063

PATIENT
  Age: 79 Year
  Sex: Female

DRUGS (15)
  1. JANTOVEN [Suspect]
     Indication: ATRIAL FIBRILLATION
     Dosage: 4.5 MG, QD, PO
     Route: 048
     Dates: end: 20080808
  2. ARICEPT [Concomitant]
  3. DIGOXIN [Concomitant]
  4. FUROSEMIDE [Concomitant]
  5. LEVOTHYROXINE SODIUM [Concomitant]
  6. MIRTAZAPINE [Concomitant]
  7. NITROGLYCERIN [Concomitant]
  8. PERCOCET [Concomitant]
  9. K-DUR [Concomitant]
  10. SEROQUEL [Concomitant]
  11. ZOCOR [Concomitant]
  12. COREG [Concomitant]
  13. NEURONTIN [Concomitant]
  14. MULTI-VITAMIN [Concomitant]
  15. VITAMIN D [Concomitant]

REACTIONS (2)
  - INTERNATIONAL NORMALISED RATIO INCREASED [None]
  - PROTHROMBIN TIME PROLONGED [None]
